FAERS Safety Report 17878065 (Version 1)
Quarter: 2020Q2

REPORT INFORMATION
  Report Type: Spontaneous
  Country: CN (occurrence: CN)
  Receive Date: 20200609
  Receipt Date: 20200609
  Transmission Date: 20200714
  Serious: Yes (Hospitalization)
  Sender: FDA-Public Use
  Company Number: CN-BAXTER-2020BAX011871

PATIENT
  Age: 7 Year
  Sex: Female
  Weight: 18.8 kg

DRUGS (18)
  1. 0.9% SODIUM CHLORIDE INJECTION [Suspect]
     Active Substance: SODIUM CHLORIDE
     Indication: MEDICATION DILUTION
     Dosage: DAY 1-2, ENDOXAN 780 MG + 0.9% SODIUM CHLORIDE 66 ML
     Route: 041
     Dates: start: 20200514, end: 20200515
  2. 0.9% SODIUM CHLORIDE INJECTION [Suspect]
     Active Substance: SODIUM CHLORIDE
     Dosage: DOSE RE-INTRODUCED, NUOXIN + 0.9% SODIUM CHLORIDE
     Route: 041
  3. NUOXIN [Suspect]
     Active Substance: CISPLATIN
     Indication: MEDULLOBLASTOMA
     Dosage: DAY 1, NUOXIN 58.5 MG + 0.9% SODIUM CHLORIDE 156 ML
     Route: 041
     Dates: start: 20200514, end: 20200514
  4. ONDANSETRON HYDROCHLORIDE. [Suspect]
     Active Substance: ONDANSETRON HYDROCHLORIDE
     Dosage: DOSE RE-INTRODUCED, ONDANSETRON HYDROCHLORIDE + 0.9% SODIUM CHLORIDE
     Route: 042
  5. 0.9% SODIUM CHLORIDE INJECTION [Suspect]
     Active Substance: SODIUM CHLORIDE
     Dosage: DAY 1, VINCRISTINE 1.2 MG + 0.9% SODIUM CHLORIDE 20 ML
     Route: 042
     Dates: start: 20200514, end: 20200514
  6. MESNA. [Suspect]
     Active Substance: MESNA
     Dosage: DOSE RE-INTRODUCED
     Route: 042
  7. ENDOXAN [Suspect]
     Active Substance: CYCLOPHOSPHAMIDE
     Dosage: DOSE RE-INTRODUCED, ENDOXAN + 0.9% SODIUM CHLORIDE
     Route: 041
  8. VINCRISTINE SULFATE. [Suspect]
     Active Substance: VINCRISTINE SULFATE
     Indication: MEDULLOBLASTOMA
     Dosage: DAY 1, VINCRISTINE 1.2 MG + 0.9% SODIUM CHLORIDE 20 ML
     Route: 042
     Dates: start: 20200514, end: 20200514
  9. NUOXIN [Suspect]
     Active Substance: CISPLATIN
     Dosage: DOSE RE-INTRODUCED, NUOXIN + 0.9% SODIUM CHLORIDE
     Route: 041
  10. 0.9% SODIUM CHLORIDE INJECTION [Suspect]
     Active Substance: SODIUM CHLORIDE
     Dosage: DAY 1-2, ONDANSETRON HYDROCHLORIDE 4 MG + 0.9% SODIUM CHLORIDE 25 ML
     Route: 042
     Dates: start: 20200514, end: 20200515
  11. 0.9% SODIUM CHLORIDE INJECTION [Suspect]
     Active Substance: SODIUM CHLORIDE
     Dosage: DOSE RE-INTRODUCED, VINCRISTINE + 0.9% SODIUM CHLORIDE
     Route: 042
  12. 0.9% SODIUM CHLORIDE INJECTION [Suspect]
     Active Substance: SODIUM CHLORIDE
     Dosage: DOSE RE-INTRODUCED, ONDANSETRON HYDROCHLORIDE + 0.9% SODIUM CHLORIDE
     Route: 042
  13. ENDOXAN [Suspect]
     Active Substance: CYCLOPHOSPHAMIDE
     Indication: MEDULLOBLASTOMA
     Dosage: DAY 1-2, ENDOXAN 780 MG + 0.9% SODIUM CHLORIDE 66 ML
     Route: 041
     Dates: start: 20200514, end: 20200515
  14. 0.9% SODIUM CHLORIDE INJECTION [Suspect]
     Active Substance: SODIUM CHLORIDE
     Dosage: DAY 1, NUOXIN 58.5 MG + 0.9% SODIUM CHLORIDE 156 ML
     Route: 041
     Dates: start: 20200514, end: 20200514
  15. 0.9% SODIUM CHLORIDE INJECTION [Suspect]
     Active Substance: SODIUM CHLORIDE
     Dosage: DOSE RE-INTRODUCED, ENDOXAN + 0.9% SODIUM CHLORIDE
     Route: 041
  16. ONDANSETRON HYDROCHLORIDE. [Suspect]
     Active Substance: ONDANSETRON HYDROCHLORIDE
     Indication: ANTIEMETIC SUPPORTIVE CARE
     Dosage: DAY 1-2, ONDANSETRON HYDROCHLORIDE 4 MG + 0.9% SODIUM CHLORIDE 25 ML
     Route: 042
     Dates: start: 20200514, end: 20200515
  17. MESNA. [Suspect]
     Active Substance: MESNA
     Indication: PROPHYLAXIS
     Dosage: DAY 1-2
     Route: 042
     Dates: start: 20200514, end: 20200515
  18. VINCRISTINE SULFATE. [Suspect]
     Active Substance: VINCRISTINE SULFATE
     Dosage: DOSE RE-INTRODUCED, VINCRISTINE + 0.9% SODIUM CHLORIDE
     Route: 042

REACTIONS (1)
  - Pancytopenia [Recovering/Resolving]

NARRATIVE: CASE EVENT DATE: 20200521
